FAERS Safety Report 24618314 (Version 1)
Quarter: 2024Q4

REPORT INFORMATION
  Report Type: Spontaneous
  Country: IN (occurrence: IN)
  Receive Date: 20241114
  Receipt Date: 20241114
  Transmission Date: 20250115
  Serious: Yes (Hospitalization)
  Sender: ROCHE
  Company Number: IN-ROCHE-3512722

PATIENT
  Age: 36 Year
  Sex: Female
  Weight: 90 kg

DRUGS (2)
  1. TECENTRIQ [Suspect]
     Active Substance: ATEZOLIZUMAB
     Indication: Neuroendocrine carcinoma metastatic
     Route: 041
     Dates: start: 20240212
  2. TECENTRIQ [Suspect]
     Active Substance: ATEZOLIZUMAB
     Route: 042

REACTIONS (3)
  - Off label use [Unknown]
  - Blood urine present [Unknown]
  - Furuncle [Unknown]
